FAERS Safety Report 13065804 (Version 1)
Quarter: 2016Q4

REPORT INFORMATION
  Report Type: Spontaneous
  Country: BR (occurrence: BR)
  Receive Date: 20161227
  Receipt Date: 20161227
  Transmission Date: 20170207
  Serious: Yes (Other)
  Sender: FDA-Public Use
  Company Number: BR-PFIZER INC-2016589582

PATIENT
  Age: 59 Year
  Sex: Female
  Weight: 55 kg

DRUGS (1)
  1. XALATAN [Suspect]
     Active Substance: LATANOPROST
     Dosage: 1X/DAY AT NIGHT
     Route: 047
     Dates: start: 2015

REACTIONS (3)
  - Intraocular pressure test abnormal [Unknown]
  - Cataract [Unknown]
  - Retinal detachment [Unknown]

NARRATIVE: CASE EVENT DATE: 2016
